FAERS Safety Report 9766730 (Version 1)
Quarter: 2013Q4

REPORT INFORMATION
  Report Type: Spontaneous
  Country: US (occurrence: US)
  Receive Date: 20131217
  Receipt Date: 20131217
  Transmission Date: 20140711
  Serious: No
  Sender: FDA-Public Use
  Company Number: US-BIOGENIDEC-2013BI118113

PATIENT
  Age: 58 Year
  Sex: Female

DRUGS (2)
  1. TECFIDERA [Suspect]
     Indication: MULTIPLE SCLEROSIS
     Route: 048
     Dates: start: 201306
  2. AMPYRA [Concomitant]
     Dates: start: 2013

REACTIONS (4)
  - Anxiety [Unknown]
  - Dissociation [Unknown]
  - Sleep disorder [Unknown]
  - Disturbance in attention [Unknown]
